FAERS Safety Report 19670084 (Version 1)
Quarter: 2021Q3

REPORT INFORMATION
  Report Type: Spontaneous
  Country: US (occurrence: US)
  Receive Date: 20210806
  Receipt Date: 20210806
  Transmission Date: 20211014
  Serious: Yes (Other)
  Sender: FDA-Public Use
  Company Number: US-GLAXOSMITHKLINE-US2021AMR163731

PATIENT
  Age: 8 Year
  Sex: Female

DRUGS (9)
  1. PREDNISOLONE ACETATE. [Concomitant]
     Active Substance: PREDNISOLONE ACETATE
     Indication: IRIDOCYCLITIS
     Dosage: 1 % TWICE DAILY FOR THE RIGHT EYE AND FOUR TIMES DAILY FOR THE LEFT EYE
  2. VALACICLOVIR [Concomitant]
     Active Substance: VALACYCLOVIR HYDROCHLORIDE
     Indication: ORAL HERPES
     Dosage: UNK
  3. CYCLOPHOSPHAMIDE. [Concomitant]
     Active Substance: CYCLOPHOSPHAMIDE
     Indication: EOSINOPHILIC GRANULOMATOSIS WITH POLYANGIITIS
     Dosage: UNK
  4. MEPOLIZUMAB [Suspect]
     Active Substance: MEPOLIZUMAB
     Indication: EOSINOPHILIC GRANULOMATOSIS WITH POLYANGIITIS
     Dosage: 200 MG, MONTHLY
     Route: 058
  5. MEPOLIZUMAB [Suspect]
     Active Substance: MEPOLIZUMAB
     Indication: JOINT EFFUSION
     Dosage: DOSE DECREASED TO EVERY SIX WEEKS
     Route: 058
  6. MEPOLIZUMAB [Suspect]
     Active Substance: MEPOLIZUMAB
     Dosage: MONTHLY
  7. PREDNISOLONE ACETATE. [Concomitant]
     Active Substance: PREDNISOLONE ACETATE
     Dosage: TAPERED
  8. METHOTREXATE. [Suspect]
     Active Substance: METHOTREXATE
     Indication: IRIDOCYCLITIS
     Dosage: 15 MG, WEEKLY
     Route: 048
  9. MYCOPHENOLATE MOFETIL. [Concomitant]
     Active Substance: MYCOPHENOLATE MOFETIL
     Indication: EOSINOPHILIC GRANULOMATOSIS WITH POLYANGIITIS
     Dosage: UNK

REACTIONS (13)
  - Cytomegalovirus chorioretinitis [Unknown]
  - Macular degeneration [Unknown]
  - Vitreous disorder [Unknown]
  - Neutropenia [Recovered/Resolved]
  - Eosinophilic pneumonia chronic [Unknown]
  - Nasal mucosa atrophy [Unknown]
  - Retinal degeneration [Unknown]
  - Anterior chamber inflammation [Recovering/Resolving]
  - Dermatitis psoriasiform [Unknown]
  - Rash papular [Unknown]
  - Anterior chamber cell [Recovering/Resolving]
  - Immunosuppression [Unknown]
  - Fibrosis [Unknown]
